FAERS Safety Report 24004751 (Version 4)
Quarter: 2024Q3

REPORT INFORMATION
  Report Type: Spontaneous
  Country: US (occurrence: US)
  Receive Date: 20240624
  Receipt Date: 20240816
  Transmission Date: 20241016
  Serious: No
  Sender: PFIZER
  Company Number: US-PFIZER INC-202400192241

PATIENT
  Age: 80 Year
  Sex: Female

DRUGS (2)
  1. PREMARIN [Suspect]
     Active Substance: ESTROGENS, CONJUGATED
     Indication: Vaginal disorder
     Dosage: ONCE A WEEK
  2. PREMARIN [Suspect]
     Active Substance: ESTROGENS, CONJUGATED
     Indication: Hormone replacement therapy

REACTIONS (2)
  - Off label use [Unknown]
  - Device use issue [Unknown]
